FAERS Safety Report 22291758 (Version 1)
Quarter: 2023Q2

REPORT INFORMATION
  Report Type: Spontaneous
  Country: US (occurrence: None)
  Receive Date: 20230505
  Receipt Date: 20230505
  Transmission Date: 20230722
  Serious: Yes (Death)
  Sender: FDA-Public Use
  Company Number: None

PATIENT
  Age: 58 Year
  Sex: Male

DRUGS (5)
  1. ISENTRESS [Suspect]
     Active Substance: RALTEGRAVIR POTASSIUM
     Indication: HIV infection
     Dosage: FREQUENCY : TWICE A DAY;?
     Route: 048
     Dates: start: 20211020
  2. SELZENTRY [Suspect]
     Active Substance: MARAVIROC
     Indication: HIV infection
     Dosage: FREQUENCY : TWICE A DAY;?
     Route: 048
     Dates: start: 20211021
  3. ADDERALL XR [Concomitant]
     Active Substance: AMPHETAMINE ASPARTATE\AMPHETAMINE SULFATE\DEXTROAMPHETAMINE SACCHARATE\DEXTROAMPHETAMINE SULFATE
     Dates: start: 20211029
  4. levothyroxine 0.3mg [Concomitant]
     Dates: start: 20211029
  5. NUVIGIL [Concomitant]
     Active Substance: ARMODAFINIL
     Dates: start: 20211011

REACTIONS (2)
  - Leukaemia [None]
  - Death [None]

NARRATIVE: CASE EVENT DATE: 20230504
